FAERS Safety Report 9581706 (Version 3)
Quarter: 2013Q4

REPORT INFORMATION
  Report Type: Spontaneous
  Country: US (occurrence: US)
  Receive Date: 20131002
  Receipt Date: 20131202
  Transmission Date: 20140711
  Serious: Yes (Other)
  Sender: FDA-Public Use
  Company Number: US-TEVA-435269USA

PATIENT
  Age: 29 Year
  Sex: Female

DRUGS (1)
  1. TRI SPRINTEC BARR LABS [Suspect]
     Indication: CONTRACEPTION
     Dates: start: 201307, end: 20130922

REACTIONS (6)
  - Urinary tract infection [Unknown]
  - Hormone level abnormal [Unknown]
  - Muscle spasms [Unknown]
  - Breast pain [Unknown]
  - Back pain [Recovering/Resolving]
  - Drug ineffective [Unknown]
